FAERS Safety Report 22272521 (Version 1)
Quarter: 2023Q2

REPORT INFORMATION
  Report Type: Spontaneous
  Country: CA (occurrence: CA)
  Receive Date: 20230502
  Receipt Date: 20230502
  Transmission Date: 20230722
  Serious: Yes (Other)
  Sender: FDA-Public Use
  Company Number: CA-BAXTER-2023BAX019849

PATIENT
  Age: 60 Year
  Sex: Male

DRUGS (3)
  1. MANNITOL [Suspect]
     Active Substance: MANNITOL
     Indication: Product used for unknown indication
     Dosage: AT AN UNSPECIFIED DOSE AND FREQUENCY (DOSAGE FORM: NOT SPECIFIED)
     Route: 065
  2. RINVOQ [Suspect]
     Active Substance: UPADACITINIB
     Indication: Psoriatic arthropathy
     Dosage: 15 MILLIGRAM 1 EVERY 1 DAYS
     Route: 048
  3. RINVOQ [Suspect]
     Active Substance: UPADACITINIB
     Indication: Psoriatic arthropathy
     Dosage: 15 MILLIGRAM, 1 EVERY 1 DAYS, (DOSAGE FORM: TABLET (EXTENDED-RELEASE))
     Route: 048

REACTIONS (5)
  - Abdominal distension [Unknown]
  - Gastric haemorrhage [Unknown]
  - Muscle spasms [Unknown]
  - Drug hypersensitivity [Unknown]
  - Malaise [Unknown]
